FAERS Safety Report 5072210-4 (Version None)
Quarter: 2006Q3

REPORT INFORMATION
  Report Type: 
  Country: None (occurrence: None)
  Receive Date: 20060807
  Receipt Date: 20060801
  Transmission Date: 20061208
  Serious: Yes (Hospitalization)
  Sender: FDA-Public Use
  Company Number: PHRM2006FR02257

PATIENT
  Age: 31 Year
  Sex: Female

DRUGS (4)
  1. BUPIVACAINE HYDROCHLORIDE [Suspect]
     Dates: start: 20051201
  2. MORPHINE [Suspect]
     Dates: start: 20051201
  3. OPIOID ANAESTHETICS [Suspect]
  4. SYNTOCINON [Suspect]
     Dates: start: 20051201

REACTIONS (3)
  - BRONCHOSPASM [None]
  - CONVULSION [None]
  - CYANOSIS [None]
